FAERS Safety Report 4954463-3 (Version None)
Quarter: 2006Q1

REPORT INFORMATION
  Report Type: 
  Country: None (occurrence: None)
  Receive Date: 20060322
  Receipt Date: 20060314
  Transmission Date: 20060701
  Serious: Yes (Other)
  Sender: FDA-Public Use
  Company Number: GXKR2006TR01450

PATIENT
  Age: 16 Day
  Sex: Male

DRUGS (4)
  1. AMIODARONE (NGX)(AMIODARONE) LIQUID [Suspect]
     Indication: VENTRICULAR TACHYCARDIA
     Dosage: SEE IMAGE
  2. GLUCOSE (GLUCOSE) [Concomitant]
  3. DOPAMINE HCL [Concomitant]
  4. DOBUTAMINE (DOBUTAMINE) [Concomitant]

REACTIONS (1)
  - HYPERGLYCAEMIA [None]
